FAERS Safety Report 24887373 (Version 1)
Quarter: 2025Q1

REPORT INFORMATION
  Report Type: Spontaneous
  Country: US (occurrence: US)
  Receive Date: 20250127
  Receipt Date: 20250127
  Transmission Date: 20250408
  Serious: No
  Sender: TARO
  Company Number: US-TARO PHARMACEUTICALS USA INC.-2024TAR00860

PATIENT

DRUGS (2)
  1. FLUOCINONIDE [Suspect]
     Active Substance: FLUOCINONIDE
     Indication: Alopecia
     Route: 061
     Dates: start: 20240610
  2. FLUOCINONIDE [Suspect]
     Active Substance: FLUOCINONIDE
     Route: 061
     Dates: start: 20240610

REACTIONS (5)
  - Erythema [Unknown]
  - Pruritus [Unknown]
  - Off label use [Unknown]
  - Product quality issue [Unknown]
  - Drug ineffective [Unknown]

NARRATIVE: CASE EVENT DATE: 20240610
